FAERS Safety Report 9972691 (Version 1)
Quarter: 2014Q1

REPORT INFORMATION
  Report Type: Spontaneous
  Country: US (occurrence: None)
  Receive Date: 20140127
  Receipt Date: 20140127
  Transmission Date: 20141002
  Serious: Yes (Other)
  Sender: FDA-Public Use
  Company Number: 1282170

PATIENT
  Sex: Female

DRUGS (1)
  1. RITUXAN [Suspect]
     Indication: RHEUMATOID ARTHRITIS

REACTIONS (3)
  - Vasculitis [None]
  - Rheumatoid factor positive [None]
  - C-reactive protein increased [None]
